FAERS Safety Report 23873186 (Version 1)
Quarter: 2024Q2

REPORT INFORMATION
  Report Type: Spontaneous
  Country: US (occurrence: US)
  Receive Date: 20240520
  Receipt Date: 20240520
  Transmission Date: 20240716
  Serious: Yes (Other)
  Sender: FDA-Public Use
  Company Number: US-Accord-425020

PATIENT
  Age: 38 Year
  Sex: Male

DRUGS (2)
  1. CAPECITABINE [Suspect]
     Active Substance: CAPECITABINE
     Indication: Rectal adenocarcinoma
     Dosage: CYCLE 3 OF CAPEOX WAS DOSE-REDUCED
  2. OXALIPLATIN [Concomitant]
     Active Substance: OXALIPLATIN
     Indication: Rectal adenocarcinoma
     Dosage: CYCLE 3 OF CAPEOX WAS DOSE-REDUCED

REACTIONS (3)
  - Balanoposthitis [Recovered/Resolved]
  - Hand-foot-genital syndrome [Recovered/Resolved]
  - Palmar-plantar erythrodysaesthesia syndrome [Unknown]
